FAERS Safety Report 6774839-1 (Version None)
Quarter: 2010Q2

REPORT INFORMATION
  Report Type: 
  Country: None (occurrence: None)
  Receive Date: 20100615
  Receipt Date: 20100615
  Transmission Date: 20101027
  Serious: Yes (Disabling)
  Sender: FDA-Public Use
  Company Number: None

PATIENT
  Sex: Female
  Weight: 68.0396 kg

DRUGS (1)
  1. MINOCYCLINE [Suspect]
     Indication: ACNE
     Dosage: 1.3 YEARS
     Dates: start: 20090108, end: 20100315

REACTIONS (9)
  - AUTOIMMUNE HEPATITIS [None]
  - BACK PAIN [None]
  - CHILLS [None]
  - DECREASED APPETITE [None]
  - HEPATITIS [None]
  - JOINT SWELLING [None]
  - LIVER DISORDER [None]
  - PAIN [None]
  - VIRAL INFECTION [None]
